FAERS Safety Report 22639299 (Version 5)
Quarter: 2023Q4

REPORT INFORMATION
  Report Type: Spontaneous
  Country: US (occurrence: US)
  Receive Date: 20230626
  Receipt Date: 20231223
  Transmission Date: 20240110
  Serious: No
  Sender: FDA-Public Use
  Company Number: US-BRISTOL-MYERS SQUIBB COMPANY-2023-089044

PATIENT
  Age: 72 Year
  Sex: Female
  Weight: 56.7 kg

DRUGS (1)
  1. POMALYST [Suspect]
     Active Substance: POMALIDOMIDE
     Indication: Plasma cell myeloma
     Route: 048
     Dates: start: 20230601, end: 20230623

REACTIONS (4)
  - Rash [Not Recovered/Not Resolved]
  - Vision blurred [Not Recovered/Not Resolved]
  - Product dose omission issue [Unknown]
  - COVID-19 [Unknown]
